FAERS Safety Report 23109699 (Version 2)
Quarter: 2023Q4

REPORT INFORMATION
  Report Type: Report from Study
  Country: CA (occurrence: CA)
  Receive Date: 20231026
  Receipt Date: 20231027
  Transmission Date: 20240109
  Serious: Yes (Other)
  Sender: FDA-Public Use
  Company Number: CA-PFIZER INC-202300337463

PATIENT
  Age: 44 Year
  Sex: Female

DRUGS (2)
  1. PAXLOVID [Interacting]
     Active Substance: NIRMATRELVIR\RITONAVIR
     Indication: COVID-19
     Dosage: UNK
     Route: 065
  2. VERZENIO [Interacting]
     Active Substance: ABEMACICLIB
     Dosage: 100.0 MG
     Route: 065

REACTIONS (6)
  - Abdominal discomfort [Unknown]
  - COVID-19 [Unknown]
  - Disease recurrence [Unknown]
  - Diarrhoea [Unknown]
  - Drug interaction [Unknown]
  - Neutrophil count decreased [Unknown]
